FAERS Safety Report 6931668-3 (Version None)
Quarter: 2010Q3

REPORT INFORMATION
  Report Type: 
  Country: None (occurrence: None)
  Receive Date: 20100813
  Receipt Date: 20100624
  Transmission Date: 20110219
  Serious: Yes (Hospitalization)
  Sender: FDA-Public Use
  Company Number: 1000014709

PATIENT
  Age: 52 Year
  Sex: Female

DRUGS (18)
  1. SAVELLA [Suspect]
     Indication: FIBROMYALGIA
     Dosage: 12.5 MG (12.5 MG, 1 IN 1 D), ORAL; 25 MG (12.5MG,2 IN 1 D), ORAL ,50MG (25MG,2IN 1D ORAL
     Route: 048
     Dates: start: 20100512, end: 20100512
  2. SAVELLA [Suspect]
     Indication: FIBROMYALGIA
     Dosage: 12.5 MG (12.5 MG, 1 IN 1 D), ORAL; 25 MG (12.5MG,2 IN 1 D), ORAL ,50MG (25MG,2IN 1D ORAL
     Route: 048
     Dates: start: 20100513, end: 20100514
  3. SAVELLA [Suspect]
     Indication: FIBROMYALGIA
     Dosage: 12.5 MG (12.5 MG, 1 IN 1 D), ORAL; 25 MG (12.5MG,2 IN 1 D), ORAL ,50MG (25MG,2IN 1D ORAL
     Route: 048
     Dates: start: 20100515, end: 20100518
  4. SAVELLA [Suspect]
     Indication: FIBROMYALGIA
     Dosage: 100 MG (50 MG, 2 IN 1 D), ORAL
     Route: 048
     Dates: start: 20100519, end: 20100615
  5. LAMISIL [Suspect]
     Indication: ONYCHOMYCOSIS
     Dates: end: 20100615
  6. TOPAMAX [Concomitant]
  7. ZANAFLEX [Concomitant]
  8. VOLTAREN [Concomitant]
  9. BENTYL [Concomitant]
  10. WELCHOL [Concomitant]
  11. FLONASE [Concomitant]
  12. ZOMIG [Concomitant]
  13. TORADOL [Concomitant]
  14. DARVOCET [Concomitant]
  15. PROAIR HFA [Concomitant]
  16. ACIPHEX [Concomitant]
  17. MELATONIN [Concomitant]
  18. VITAMIN D [Concomitant]

REACTIONS (1)
  - HEPATITIS [None]
